FAERS Safety Report 11163536 (Version 1)
Quarter: 2015Q2

REPORT INFORMATION
  Report Type: Spontaneous
  Country: KR (occurrence: None)
  Receive Date: 20150602
  Receipt Date: 20150602
  Transmission Date: 20150821
  Serious: Yes (Life-Threatening)
  Sender: FDA-Public Use
  Company Number: INT_00779_2015

PATIENT

DRUGS (5)
  1. PACLITAXEL. [Suspect]
     Active Substance: PACLITAXEL
     Indication: BLADDER TRANSITIONAL CELL CARCINOMA STAGE I
     Dosage: 3 HOURS ON DAY 1
     Route: 042
  2. RANITIDINE [Concomitant]
     Active Substance: RANITIDINE\RANITIDINE HYDROCHLORIDE
  3. PHENIRAMINE [Concomitant]
     Active Substance: PHENIRAMINE
  4. CYCLOPHOSPHAMIDE. [Suspect]
     Active Substance: CYCLOPHOSPHAMIDE
     Indication: BLADDER TRANSITIONAL CELL CARCINOMA STAGE I
     Dosage: DAYS 1-7 IN 3-WEEK SCHEDULE
     Route: 048
  5. DEXAMETHASONE. [Concomitant]
     Active Substance: DEXAMETHASONE

REACTIONS (3)
  - Urosepsis [None]
  - Haemodialysis [None]
  - Acute kidney injury [None]
